FAERS Safety Report 9400578 (Version 3)
Quarter: 2014Q1

REPORT INFORMATION
  Report Type: Spontaneous
  Country: GB (occurrence: GB)
  Receive Date: 20130715
  Receipt Date: 20140207
  Transmission Date: 20141002
  Serious: Yes (Disabling)
  Sender: FDA-Public Use
  Company Number: GB-WATSON-2013-12387

PATIENT
  Age: 69 Year
  Sex: Male
  Weight: 80 kg

DRUGS (2)
  1. OMEPRAZOLE (UNKNOWN) [Suspect]
     Indication: PRODUCT USED FOR UNKNOWN INDICATION
     Dosage: 40 MG, UNKNOWN
     Route: 065
     Dates: start: 20130514
  2. VORICONAZOLE [Interacting]
     Indication: INTERVERTEBRAL DISCITIS
     Dosage: 360 MG, BID - THE DOSE OF VORICONOZOLE WAS REDUCED TO 100 MG 12TH HOURLY
     Route: 042
     Dates: start: 20130510

REACTIONS (2)
  - Drug level increased [Recovered/Resolved]
  - Drug interaction [Unknown]
